FAERS Safety Report 5092401-6 (Version None)
Quarter: 2006Q3

REPORT INFORMATION
  Report Type: 
  Country: None (occurrence: None)
  Receive Date: 20060825
  Receipt Date: 20060808
  Transmission Date: 20061208
  Serious: Yes (Hospitalization)
  Sender: FDA-Public Use
  Company Number: 163-C5013-06080336

PATIENT
  Age: 68 Year
  Sex: Male

DRUGS (8)
  1. REVLIMID [Suspect]
     Indication: MULTIPLE MYELOMA
     Dosage: 25 MG, 1 IN 1 D, ORAL
     Route: 048
     Dates: start: 20060422, end: 20060504
  2. DECADRON [Suspect]
     Indication: MULTIPLE MYELOMA
  3. OXYCONTIN [Concomitant]
  4. OXYCODONE HCL [Concomitant]
  5. FENTANYL [Concomitant]
  6. LIPITOR [Concomitant]
  7. METOPROLOL TARTRATE [Concomitant]
  8. FLUCONAZOLE [Concomitant]

REACTIONS (4)
  - DIABETES MELLITUS [None]
  - DIABETIC KETOACIDOSIS [None]
  - HYPERCALCAEMIA [None]
  - HYPERGLYCAEMIC HYPEROSMOLAR NONKETOTIC SYNDROME [None]
